FAERS Safety Report 6679225-0 (Version None)
Quarter: 2010Q2

REPORT INFORMATION
  Report Type: 
  Country: None (occurrence: None)
  Receive Date: 20100408
  Receipt Date: 20090721
  Transmission Date: 20101027
  Serious: No
  Sender: FDA-Public Use
  Company Number: 2009-00457

PATIENT
  Age: 47 Year
  Sex: Female
  Weight: 102.5129 kg

DRUGS (2)
  1. ZICAM COLD REMEDY NASAL GEL [Suspect]
     Dosage: SPORADIC , OVER 3 YEARS AGO-
     Route: 045
  2. HYDROCODONE [Concomitant]

REACTIONS (1)
  - ANOSMIA [None]
